FAERS Safety Report 17802030 (Version 1)
Quarter: 2020Q2

REPORT INFORMATION
  Report Type: Spontaneous
  Country: FR (occurrence: FR)
  Receive Date: 20200519
  Receipt Date: 20200519
  Transmission Date: 20200714
  Serious: Yes (Hospitalization)
  Sender: FDA-Public Use
  Company Number: FR-SAMSUNG BIOEPIS-SB-2020-16840

PATIENT
  Age: 40 Year
  Sex: Male
  Weight: 96.5 kg

DRUGS (2)
  1. IMRALDI [Suspect]
     Active Substance: ADALIMUMAB
     Indication: ANKYLOSING SPONDYLITIS
     Route: 058
     Dates: start: 20191030, end: 20191113
  2. ANTALNOX [Suspect]
     Active Substance: NAPROXEN SODIUM
     Indication: ANKYLOSING SPONDYLITIS
     Dosage: FILM-COATED TABLET
     Route: 048
     Dates: end: 201910

REACTIONS (2)
  - Carotid artery dissection [Not Recovered/Not Resolved]
  - Transient ischaemic attack [Recovered/Resolved]

NARRATIVE: CASE EVENT DATE: 20191122
